FAERS Safety Report 12920899 (Version 1)
Quarter: 2016Q4

REPORT INFORMATION
  Report Type: Spontaneous
  Country: US (occurrence: US)
  Receive Date: 20161107
  Receipt Date: 20161107
  Transmission Date: 20170207
  Serious: Yes (Other)
  Sender: FDA-Public Use
  Company Number: None

PATIENT
  Age: 20 Year
  Sex: Female
  Weight: 72 kg

DRUGS (7)
  1. LYSINE [Concomitant]
     Active Substance: LYSINE
  2. MAGNESIUM [Concomitant]
     Active Substance: MAGNESIUM
  3. DEPLIN [Concomitant]
     Active Substance: LEVOMEFOLATE CALCIUM
  4. PRISTIQ EXTENDED-RELEASE [Suspect]
     Active Substance: DESVENLAFAXINE SUCCINATE
     Indication: DEPRESSION
     Dosage: ?          QUANTITY:7 TABLET(S);?
     Route: 048
     Dates: start: 20160927, end: 20161030
  5. ADDERALL [Concomitant]
     Active Substance: AMPHETAMINE ASPARTATE\AMPHETAMINE SULFATE\DEXTROAMPHETAMINE SACCHARATE\DEXTROAMPHETAMINE SULFATE
  6. CATAPRES [Concomitant]
     Active Substance: CLONIDINE HYDROCHLORIDE
  7. VITAMIN D [Concomitant]
     Active Substance: CHOLECALCIFEROL

REACTIONS (16)
  - Dizziness [None]
  - Alopecia [None]
  - Depression [None]
  - Restlessness [None]
  - Abdominal discomfort [None]
  - Pyrexia [None]
  - Influenza like illness [None]
  - Mental disorder [None]
  - Agitation [None]
  - Mobility decreased [None]
  - Anxiety [None]
  - Crying [None]
  - Malaise [None]
  - Disturbance in attention [None]
  - Fatigue [None]
  - Pain [None]

NARRATIVE: CASE EVENT DATE: 20160927
